FAERS Safety Report 23085297 (Version 2)
Quarter: 2023Q4

REPORT INFORMATION
  Report Type: Spontaneous
  Country: US (occurrence: US)
  Receive Date: 20231019
  Receipt Date: 20231117
  Transmission Date: 20240110
  Serious: Yes (Other)
  Sender: FDA-Public Use
  Company Number: US-ABBVIE-5453756

PATIENT
  Age: 63 Year
  Sex: Male

DRUGS (1)
  1. VUITY [Suspect]
     Active Substance: PILOCARPINE HYDROCHLORIDE
     Indication: Presbyopia
     Route: 047
     Dates: start: 2022

REACTIONS (3)
  - Cataract [Unknown]
  - Retinal detachment [Recovered/Resolved with Sequelae]
  - Vitreous haemorrhage [Unknown]

NARRATIVE: CASE EVENT DATE: 20220101
